FAERS Safety Report 5808968-3 (Version None)
Quarter: 2008Q3

REPORT INFORMATION
  Report Type: 
  Country: None (occurrence: None)
  Receive Date: 20080710
  Receipt Date: 20080710
  Transmission Date: 20090109
  Serious: No
  Sender: FDA-Public Use
  Company Number: None

PATIENT
  Age: 53 Year
  Sex: Male
  Weight: 63.5036 kg

DRUGS (3)
  1. CIPRO [Suspect]
     Indication: NEPHROLITHIASIS
     Dates: start: 19880101, end: 19950101
  2. CIPRO [Suspect]
     Indication: URINARY TRACT INFECTION
     Dates: start: 19880101, end: 19950101
  3. LEVAQUIN [Suspect]
     Indication: PNEUMONIA
     Dates: start: 19960201, end: 19960210

REACTIONS (2)
  - TENDON RUPTURE [None]
  - TENDONITIS [None]
